FAERS Safety Report 6688115-9 (Version None)
Quarter: 2010Q2

REPORT INFORMATION
  Report Type: 
  Country: None (occurrence: None)
  Receive Date: 20100420
  Receipt Date: 20100413
  Transmission Date: 20101027
  Serious: Yes (Hospitalization)
  Sender: FDA-Public Use
  Company Number: US-ASTRAZENECA-2005UW07096

PATIENT
  Age: 876 Month
  Sex: Female
  Weight: 93 kg

DRUGS (15)
  1. ZESTRIL [Suspect]
     Indication: HYPERTENSION
     Route: 048
  2. ZESTRIL [Suspect]
     Route: 048
  3. ZESTRIL [Suspect]
     Route: 048
  4. ZESTRIL [Suspect]
     Route: 048
     Dates: end: 20090101
  5. ZESTRIL [Suspect]
     Route: 048
     Dates: end: 20091101
  6. ZESTRIL [Suspect]
     Route: 048
  7. NORVASC [Concomitant]
  8. HYDROCHLOROTHIAZIDE [Concomitant]
  9. ZANTAC [Concomitant]
  10. COUMADIN [Concomitant]
  11. TOPROL-XL [Concomitant]
  12. TOPROL-XL [Concomitant]
  13. CARDURA [Concomitant]
  14. NEURONTIN [Concomitant]
  15. NORTRIPTYLINE HCL [Concomitant]

REACTIONS (7)
  - BLOOD PRESSURE DECREASED [None]
  - BLOOD PRESSURE INCREASED [None]
  - DRUG EFFECT DECREASED [None]
  - DRUG INEFFECTIVE [None]
  - FATIGUE [None]
  - HEADACHE [None]
  - SOMNOLENCE [None]
